FAERS Safety Report 14756173 (Version 1)
Quarter: 2018Q2

REPORT INFORMATION
  Report Type: Spontaneous
  Country: US (occurrence: US)
  Receive Date: 20180413
  Receipt Date: 20180413
  Transmission Date: 20180711
  Serious: No
  Sender: FDA-Public Use
  Company Number: US-BION-006769

PATIENT
  Sex: Male

DRUGS (1)
  1. NAPROXEN SODIUM BION 220MG SOFTGEL 120CT [Suspect]
     Active Substance: NAPROXEN SODIUM
     Indication: BACK PAIN
     Dosage: STRENGTH: 220 MG
     Route: 048
     Dates: start: 20171027

REACTIONS (3)
  - Incorrect dose administered [Not Recovered/Not Resolved]
  - Drug ineffective [Not Recovered/Not Resolved]
  - Product substitution issue [Unknown]
